FAERS Safety Report 6144541-8 (Version None)
Quarter: 2009Q2

REPORT INFORMATION
  Report Type: 
  Country: None (occurrence: None)
  Receive Date: 20090402
  Receipt Date: 20090206
  Transmission Date: 20091009
  Serious: No
  Sender: FDA-Public Use
  Company Number: 1000003873

PATIENT
  Age: 70 Year
  Sex: Male

DRUGS (1)
  1. BYSTOLIC [Suspect]
     Dosage: 5 MG ( 5 MG, 1 IN 1 D), ORAL
     Route: 048

REACTIONS (1)
  - DYSPNOEA [None]
